FAERS Safety Report 15182952 (Version 1)
Quarter: 2018Q4

REPORT INFORMATION
  Report Type: Spontaneous
  Country: US (occurrence: US)
  Receive Date: 20180723
  Receipt Date: 20180723
  Transmission Date: 20190204
  Serious: No
  Sender: FDA-Public Use
  Company Number: US-BAYER-2018-132344

PATIENT
  Age: 5 Year
  Sex: Female
  Weight: 23 kg

DRUGS (3)
  1. COPPERTONE SPORT SUNSCREEN SPF 50 [Suspect]
     Active Substance: AVOBENZONE\HOMOSALATE\OCTISALATE\OCTOCRYLENE\OXYBENZONE
     Indication: THERAPEUTIC SKIN CARE TOPICAL
     Dosage: AS DIRECTED DOSE
     Route: 061
     Dates: start: 20180705, end: 20180705
  2. CLARITIN [Suspect]
     Active Substance: LORATADINE
     Indication: NASOPHARYNGITIS
     Route: 048
     Dates: start: 2017, end: 201806
  3. CLARITIN [Suspect]
     Active Substance: LORATADINE
     Indication: ALLERGIC RESPIRATORY SYMPTOM
     Dosage: 1 CHEWABLE DAILY
     Route: 048
     Dates: start: 201806

REACTIONS (10)
  - Rash macular [Not Recovered/Not Resolved]
  - Dermatitis contact [Recovering/Resolving]
  - Rash [Recovering/Resolving]
  - Erythema [Recovering/Resolving]
  - Erythema [Not Recovered/Not Resolved]
  - Discomfort [Recovered/Resolved]
  - Facial pain [Recovered/Resolved]
  - Urticaria [Recovering/Resolving]
  - Rash erythematous [Recovered/Resolved with Sequelae]
  - Urticaria [Recovering/Resolving]

NARRATIVE: CASE EVENT DATE: 20180706
